FAERS Safety Report 12134791 (Version 6)
Quarter: 2017Q4

REPORT INFORMATION
  Report Type: Spontaneous
  Country: AU (occurrence: AU)
  Receive Date: 20160301
  Receipt Date: 20171023
  Transmission Date: 20180320
  Serious: Yes (Death, Other)
  Sender: FDA-Public Use
  Company Number: AU-BAUSCH-BL-2016-004637

PATIENT
  Age: 31 Year
  Sex: Male

DRUGS (3)
  1. FLUOROURACIL. [Suspect]
     Active Substance: FLUOROURACIL
     Indication: PANCREATIC CARCINOMA METASTATIC
     Dosage: EVERY CYCLE
     Route: 065
  2. FOLINIC ACID [Suspect]
     Active Substance: LEUCOVORIN
     Indication: PANCREATIC CARCINOMA METASTATIC
     Dosage: EVERY CYCLE
     Route: 065
  3. OXALIPLATIN. [Suspect]
     Active Substance: OXALIPLATIN
     Indication: PANCREATIC CARCINOMA METASTATIC
     Dosage: EVERY CYCLE
     Route: 065

REACTIONS (4)
  - Abdominal sepsis [Fatal]
  - Intestinal ischaemia [Fatal]
  - Portal venous gas [Fatal]
  - Pneumatosis intestinalis [Fatal]
